FAERS Safety Report 10160900 (Version 1)
Quarter: 2014Q2

REPORT INFORMATION
  Report Type: Spontaneous
  Country: US (occurrence: None)
  Receive Date: 20140507
  Receipt Date: 20140507
  Transmission Date: 20141212
  Serious: Yes (Other)
  Sender: FDA-Public Use
  Company Number: None

PATIENT
  Sex: Female
  Weight: 63.96 kg

DRUGS (2)
  1. LAMOTRIGINE [Suspect]
     Indication: EPILEPSY
     Dosage: LAMOTRIGINE BID ORAL
     Route: 048
     Dates: start: 201310
  2. LAMOTRIGINE [Suspect]
     Indication: HYPERAMMONAEMIA
     Dosage: LAMOTRIGINE BID ORAL
     Route: 048
     Dates: start: 201310

REACTIONS (5)
  - Drug ineffective [None]
  - Rash [None]
  - Dysphagia [None]
  - Product substitution issue [None]
  - Wrong technique in drug usage process [None]
